FAERS Safety Report 22358338 (Version 5)
Quarter: 2024Q3

REPORT INFORMATION
  Report Type: Spontaneous
  Country: US (occurrence: US)
  Receive Date: 20230524
  Receipt Date: 20240726
  Transmission Date: 20241016
  Serious: Yes (Other)
  Sender: SANOFI AVENTIS
  Company Number: US-SA-SAC20230523000658

PATIENT
  Age: 8 Year
  Sex: Male

DRUGS (6)
  1. ALPROLIX [Suspect]
     Active Substance: EFTRENONACOG ALFA
     Indication: Factor IX deficiency
     Dosage: 2500 U (2250-2750) , QW
     Route: 042
     Dates: start: 201503
  2. ALPROLIX [Suspect]
     Active Substance: EFTRENONACOG ALFA
     Indication: Factor IX deficiency
     Dosage: 2500 U (2250-2750) , QW
     Route: 042
     Dates: start: 201503
  3. ALPROLIX [Suspect]
     Active Substance: EFTRENONACOG ALFA
     Dosage: 2500 U (2250-2750) , PRN
     Route: 042
     Dates: start: 201503
  4. ALPROLIX [Suspect]
     Active Substance: EFTRENONACOG ALFA
     Dosage: 2500 U (2250-2750) , PRN
     Route: 042
     Dates: start: 201503
  5. ALPROLIX [Suspect]
     Active Substance: EFTRENONACOG ALFA
     Dosage: INFUSE 2100 UNITS (1890-2310) SLOW IV PUSH EVERY 7 DAYS AND AS NEEDED FOR BLEEDING EPISODES
     Route: 042
     Dates: start: 202302
  6. ALPROLIX [Suspect]
     Active Substance: EFTRENONACOG ALFA
     Dosage: INFUSE 2100 UNITS (1890-2310) SLOW IV PUSH EVERY 7 DAYS AND AS NEEDED FOR BLEEDING EPISODES
     Route: 042
     Dates: start: 202302

REACTIONS (5)
  - Haemorrhage [Unknown]
  - Haemorrhage [Recovered/Resolved]
  - Epistaxis [Unknown]
  - Epistaxis [Unknown]
  - Epistaxis [Unknown]

NARRATIVE: CASE EVENT DATE: 20230509
